FAERS Safety Report 14599940 (Version 1)
Quarter: 2018Q1

REPORT INFORMATION
  Report Type: Spontaneous
  Country: US (occurrence: US)
  Receive Date: 20180304
  Receipt Date: 20180304
  Transmission Date: 20180509
  Serious: Yes (Other)
  Sender: FDA-Public Use
  Company Number: None

PATIENT
  Age: 27 Year
  Sex: Female
  Weight: 56.25 kg

DRUGS (3)
  1. DAILY VITAMIN [Concomitant]
     Active Substance: VITAMINS
  2. COSMIC CLEANSE BODY BUDDER (CBD) [Suspect]
     Active Substance: CANNABIDIOL
     Indication: SKIN DISORDER
     Route: 061
     Dates: start: 20171110, end: 20171111
  3. BIRTH CONTROL [Concomitant]
     Active Substance: UNSPECIFIED INGREDIENT

REACTIONS (2)
  - Rash [None]
  - Product label issue [None]

NARRATIVE: CASE EVENT DATE: 20171110
